FAERS Safety Report 21564574 (Version 1)
Quarter: 2022Q4

REPORT INFORMATION
  Report Type: Other
  Country: NZ (occurrence: None)
  Receive Date: 20221108
  Receipt Date: 20221108
  Transmission Date: 20230113
  Serious: Yes (Other)
  Sender: FDA-Public Use
  Company Number: NZ-Saptalis Pharmaceuticals,LLC-000314

PATIENT
  Age: 70 Year
  Sex: Male

DRUGS (3)
  1. TRIAMCINOLONE ACETONIDE [Suspect]
     Active Substance: TRIAMCINOLONE ACETONIDE
     Indication: Product used for unknown indication
     Route: 031
  2. CLINDAMYCIN [Concomitant]
     Active Substance: CLINDAMYCIN
     Indication: Toxoplasmosis
     Dosage: 2 INTRAVITREAL CLINDAMYCIN
  3. PREDNISONE [Concomitant]
     Active Substance: PREDNISONE
     Indication: Toxoplasmosis

REACTIONS (3)
  - Infective uveitis [Unknown]
  - Disease progression [Unknown]
  - Chorioretinitis [Unknown]
